FAERS Safety Report 25421277 (Version 1)
Quarter: 2025Q2

REPORT INFORMATION
  Report Type: Spontaneous
  Country: CN (occurrence: CN)
  Receive Date: 20250611
  Receipt Date: 20250611
  Transmission Date: 20250717
  Serious: Yes (Hospitalization)
  Sender: ROCHE
  Company Number: CN-ROCHE-10000160036

PATIENT
  Age: 71 Year
  Sex: Male

DRUGS (12)
  1. BEVACIZUMAB [Suspect]
     Active Substance: BEVACIZUMAB
     Indication: Colon cancer metastatic
     Route: 065
  2. LEUCOVORIN CALCIUM [Concomitant]
     Active Substance: LEUCOVORIN CALCIUM
  3. FLUOROURACIL [Concomitant]
     Active Substance: FLUOROURACIL
  4. OXALIPLATIN [Concomitant]
     Active Substance: OXALIPLATIN
  5. CAPECITABINE [Concomitant]
     Active Substance: CAPECITABINE
  6. ETHAMSYLATE [Concomitant]
     Active Substance: ETHAMSYLATE
  7. BERBERINE [Concomitant]
     Active Substance: BERBERINE
  8. IMIPENEM [Concomitant]
     Active Substance: IMIPENEM
  9. MOXIFLOXACIN [Concomitant]
     Active Substance: MOXIFLOXACIN
  10. METRONIDAZOLE [Concomitant]
     Active Substance: METRONIDAZOLE
  11. TEICOPLANIN [Concomitant]
     Active Substance: TEICOPLANIN
  12. VANCOMYCIN [Concomitant]
     Active Substance: VANCOMYCIN

REACTIONS (1)
  - Colitis [Unknown]
